FAERS Safety Report 14185966 (Version 1)
Quarter: 2017Q4

REPORT INFORMATION
  Report Type: Spontaneous
  Country: US (occurrence: US)
  Receive Date: 20171114
  Receipt Date: 20171114
  Transmission Date: 20180321
  Serious: No
  Sender: FDA-Public Use
  Company Number: PHEH2017US035938

PATIENT
  Sex: Male

DRUGS (3)
  1. TRIAMCINOLONE ACETONIDE. [Suspect]
     Active Substance: TRIAMCINOLONE ACETONIDE
     Indication: SKIN FISSURES
  2. TRIAMCINOLONE ACETONIDE. [Suspect]
     Active Substance: TRIAMCINOLONE ACETONIDE
     Indication: SKIN DISORDER
     Dosage: UNK UNK, PRN (TID, AS NEEDED)
     Route: 061
  3. TRIAMCINOLONE ACETONIDE. [Suspect]
     Active Substance: TRIAMCINOLONE ACETONIDE
     Indication: DRY SKIN

REACTIONS (2)
  - Pruritus [Recovering/Resolving]
  - Skin exfoliation [Recovering/Resolving]
